FAERS Safety Report 5410061-9 (Version None)
Quarter: 2007Q3

REPORT INFORMATION
  Report Type: 
  Country: None (occurrence: None)
  Receive Date: 20070713
  Receipt Date: 20070408
  Transmission Date: 20080115
  Serious: No
  Sender: FDA-Public Use
  Company Number: 2007SP001251

PATIENT
  Age: 43 Year
  Sex: Female
  Weight: 49.8957 kg

DRUGS (5)
  1. LUNESTA [Suspect]
     Indication: INSOMNIA
     Dosage: 3 MG;PRN;ORAL; 2 MG;PRN;ORAL
     Route: 048
     Dates: start: 20070301, end: 20070301
  2. LUNESTA [Suspect]
     Indication: INSOMNIA
     Dosage: 3 MG;PRN;ORAL; 2 MG;PRN;ORAL
     Route: 048
     Dates: start: 20070301, end: 20070301
  3. LEXAPRO [Concomitant]
  4. HYDROCODONE BITARTRATE [Concomitant]
  5. LORAZEPAM [Concomitant]

REACTIONS (3)
  - FEMALE ORGASMIC DISORDER [None]
  - PARASOMNIA [None]
  - SOMNOLENCE [None]
